FAERS Safety Report 7415778-2 (Version None)
Quarter: 2011Q2

REPORT INFORMATION
  Report Type: 
  Country: None (occurrence: None)
  Receive Date: 20110414
  Receipt Date: 20110411
  Transmission Date: 20111010
  Serious: Yes (Hospitalization, Other)
  Sender: FDA-Public Use
  Company Number: GB-ABBOTT-11P-167-0718263-00

PATIENT
  Sex: Male

DRUGS (5)
  1. PREZISTA [Suspect]
     Indication: HIV INFECTION
     Route: 048
     Dates: start: 20100501
  2. RITONAVIR [Suspect]
     Indication: HIV INFECTION
  3. RALTEGRAVIR [Suspect]
     Indication: HIV INFECTION
  4. INTELENCE [Suspect]
     Indication: HIV INFECTION
     Route: 048
     Dates: start: 20100501, end: 20101231
  5. VALPROATE SODIUM [Concomitant]
     Indication: EPILEPSY
     Route: 048
     Dates: start: 20040601

REACTIONS (2)
  - TUBERCULOSIS [None]
  - PENIS CARCINOMA METASTATIC [None]
